FAERS Safety Report 5495889-1 (Version None)
Quarter: 2007Q4

REPORT INFORMATION
  Report Type: 
  Country: None (occurrence: None)
  Receive Date: 20071025
  Receipt Date: 20061108
  Transmission Date: 20080405
  Serious: No
  Sender: FDA-Public Use
  Company Number: A0626720A

PATIENT
  Age: 75 Year
  Sex: Female

DRUGS (14)
  1. ADVAIR DISKUS 100/50 [Suspect]
     Indication: CHRONIC OBSTRUCTIVE PULMONARY DISEASE
     Dosage: 1PUFF TWICE PER DAY
     Route: 055
     Dates: start: 20050101
  2. MECLIZINE [Concomitant]
  3. ZYRTEC [Concomitant]
  4. TRIAMTERENE [Concomitant]
  5. GLYBURIDE [Concomitant]
  6. ACTOS [Concomitant]
  7. QUININE SULFATE [Concomitant]
  8. DELTAZEN [Concomitant]
  9. NEURONTIN [Concomitant]
  10. VITAMIN E [Concomitant]
  11. LIPITOR [Concomitant]
  12. CALTRATE [Concomitant]
  13. VITAMIN B [Concomitant]
  14. TYLENOL (CAPLET) [Concomitant]

REACTIONS (2)
  - COUGH [None]
  - PHARMACEUTICAL PRODUCT COMPLAINT [None]
